FAERS Safety Report 12386850 (Version 2)
Quarter: 2016Q2

REPORT INFORMATION
  Report Type: Spontaneous
  Country: US (occurrence: US)
  Receive Date: 20160519
  Receipt Date: 20160613
  Transmission Date: 20160815
  Serious: Yes (Hospitalization)
  Sender: FDA-Public Use
  Company Number: US-IMPAX LABORATORIES, INC-2016-IPXL-00547

PATIENT
  Age: 14 Year
  Sex: Male

DRUGS (1)
  1. TETRACYCLINE HYDROCHLORIDE. [Suspect]
     Active Substance: TETRACYCLINE HYDROCHLORIDE
     Indication: ACNE
     Dosage: 250 MG, 4 /DAY
     Route: 048

REACTIONS (1)
  - Pancreatitis acute [Recovered/Resolved]
